FAERS Safety Report 4550617-9 (Version None)
Quarter: 2004Q4

REPORT INFORMATION
  Report Type: 
  Country: None (occurrence: None)
  Receive Date: 20041227
  Receipt Date: 20040907
  Transmission Date: 20050328
  Serious: No
  Sender: FDA-Public Use
  Company Number: 04P-163-0272549-00

PATIENT
  Age: 65 Year
  Sex: Female
  Weight: 84.8226 kg

DRUGS (9)
  1. HUMIRA [Suspect]
     Indication: RHEUMATOID ARTHRITIS
     Dosage: 40 MG, 1 IN 2 WK, SUBCUTANEOUS
     Route: 058
     Dates: start: 20040401
  2. CELECOXIB [Concomitant]
  3. HYDROCHLOROTHIAZIDE [Concomitant]
  4. BISOPROLOL FUMARATE [Concomitant]
  5. TRAZODONE [Concomitant]
  6. ZOLPIDEM TARTRATE [Concomitant]
  7. LANSOPRAZOLE [Concomitant]
  8. LORATADINE [Concomitant]
  9. ESTROGENS CONJUGATED [Concomitant]

REACTIONS (2)
  - INJECTION SITE MASS [None]
  - RASH [None]
